FAERS Safety Report 18802547 (Version 1)
Quarter: 2021Q1

REPORT INFORMATION
  Report Type: Spontaneous
  Country: US (occurrence: US)
  Receive Date: 20210128
  Receipt Date: 20210128
  Transmission Date: 20210419
  Serious: No
  Sender: FDA-Public Use
  Company Number: US-VERO BIOTECH-2105994

PATIENT
  Sex: Female

DRUGS (2)
  1. GENOSYL [Suspect]
     Active Substance: NITRIC OXIDE
  2. GENOSYL [Suspect]
     Active Substance: NITRIC OXIDE
     Indication: COVID-19
     Route: 055

REACTIONS (3)
  - Underdose [Recovered/Resolved]
  - No adverse event [None]
  - Device alarm issue [Unknown]

NARRATIVE: CASE EVENT DATE: 20201229
